FAERS Safety Report 4311698-0 (Version None)
Quarter: 2004Q1

REPORT INFORMATION
  Report Type: 
  Country: None (occurrence: None)
  Receive Date: 20040303
  Receipt Date: 20040303
  Transmission Date: 20041129
  Serious: Yes (Life-Threatening)
  Sender: FDA-Public Use
  Company Number: None

PATIENT
  Age: 66 Year
  Sex: Male
  Weight: 81.1939 kg

DRUGS (2)
  1. CORDIS CYPHER MEDICATED STENT [Suspect]
     Indication: ARTERIAL OCCLUSIVE DISEASE
     Dosage: IMPLANTED 9/30/03
  2. CORDIS CYPHER STENT [Suspect]

REACTIONS (6)
  - ANGIONEUROTIC OEDEMA [None]
  - HYPERSENSITIVITY [None]
  - MEDICAL DEVICE COMPLICATION [None]
  - PRURITUS [None]
  - STENT OCCLUSION [None]
  - THROAT TIGHTNESS [None]
